FAERS Safety Report 7130338-9 (Version None)
Quarter: 2010Q4

REPORT INFORMATION
  Report Type: 
  Country: None (occurrence: None)
  Receive Date: 20101116
  Receipt Date: 20101104
  Transmission Date: 20110411
  Serious: Yes (Death)
  Sender: FDA-Public Use
  Company Number: GB-ACCORD-006656

PATIENT
  Age: 49 Year
  Sex: Male

DRUGS (4)
  1. MYCOPHENOLATE MOFETIL [Suspect]
     Indication: RENAL TRANSPLANT
  2. TACROLIMUS [Suspect]
     Indication: RENAL TRANSPLANT
     Dates: end: 20080101
  3. PREDNISOLONE [Suspect]
     Indication: RENAL TRANSPLANT
  4. TRIMETHOPRIM + SULFAMETHOXAZOLE [Concomitant]

REACTIONS (4)
  - CEREBRAL TOXOPLASMOSIS [None]
  - GENERAL PHYSICAL HEALTH DETERIORATION [None]
  - GRAND MAL CONVULSION [None]
  - PNEUMONIA ASPIRATION [None]
